FAERS Safety Report 23870097 (Version 2)
Quarter: 2024Q2

REPORT INFORMATION
  Report Type: Spontaneous
  Country: US (occurrence: US)
  Receive Date: 20240517
  Receipt Date: 20240619
  Transmission Date: 20240716
  Serious: No
  Sender: FDA-Public Use
  Company Number: US-SA-SAC20240513000607

PATIENT
  Age: 36 Year
  Sex: Male

DRUGS (4)
  1. DUPIXENT [Suspect]
     Active Substance: DUPILUMAB
     Indication: Dermatitis atopic
     Dosage: 300 MG, QOW
     Route: 058
     Dates: start: 20230801
  2. ADBRY [Concomitant]
     Active Substance: TRALOKINUMAB-LDRM
  3. FINASTERIDE [Concomitant]
     Active Substance: FINASTERIDE
  4. MINOXIDIL [Concomitant]
     Active Substance: MINOXIDIL

REACTIONS (5)
  - Sleep disorder due to a general medical condition [Unknown]
  - Infection [Unknown]
  - Rash [Not Recovered/Not Resolved]
  - Discomfort [Not Recovered/Not Resolved]
  - Drug ineffective [Unknown]

NARRATIVE: CASE EVENT DATE: 20240101
